FAERS Safety Report 4666986-5 (Version None)
Quarter: 2005Q2

REPORT INFORMATION
  Report Type: 
  Country: None (occurrence: None)
  Receive Date: 20050518
  Receipt Date: 20050104
  Transmission Date: 20051028
  Serious: Yes (Other)
  Sender: FDA-Public Use
  Company Number: 2004224519US

PATIENT
  Age: 31 Year
  Sex: Female
  Weight: 117 kg

DRUGS (1)
  1. DEPO-PROVERA [Suspect]
     Indication: ILL-DEFINED DISORDER
     Dosage: 150 MG (150 MG, SINGLE INJECTION)
     Dates: start: 20001128, end: 20001128

REACTIONS (2)
  - AMENORRHOEA [None]
  - WEIGHT INCREASED [None]
